FAERS Safety Report 20005022 (Version 2)
Quarter: 2022Q1

REPORT INFORMATION
  Report Type: Spontaneous
  Country: DE (occurrence: DE)
  Receive Date: 20211027
  Receipt Date: 20220329
  Transmission Date: 20220424
  Serious: Yes (Hospitalization, Other)
  Sender: FDA-Public Use
  Company Number: DE-MERCK HEALTHCARE KGAA-9270071

PATIENT
  Sex: Female

DRUGS (17)
  1. PREDNISOLONE [Suspect]
     Active Substance: PREDNISOLONE
     Indication: Product used for unknown indication
     Dosage: UNK
     Route: 065
  2. CLINDAMYCIN\CLOTRIMAZOLE [Suspect]
     Active Substance: CLINDAMYCIN\CLOTRIMAZOLE
     Indication: Product used for unknown indication
     Dosage: UNK
     Route: 065
  3. NYSTATIN [Suspect]
     Active Substance: NYSTATIN
     Indication: Product used for unknown indication
     Dosage: UNK
     Route: 065
  4. IBUPROFEN [Suspect]
     Active Substance: IBUPROFEN
     Indication: Product used for unknown indication
     Dosage: UNK
     Route: 065
  5. CLINDAGEL [Suspect]
     Active Substance: CLINDAMYCIN PHOSPHATE
     Indication: Product used for unknown indication
     Dosage: UNK
     Route: 065
  6. TRIMETHOPRIM [Suspect]
     Active Substance: TRIMETHOPRIM
     Indication: Product used for unknown indication
     Dosage: UNK
     Route: 065
  7. ROXITHROMYCIN [Suspect]
     Active Substance: ROXITHROMYCIN
     Indication: Product used for unknown indication
     Dosage: UNK
     Route: 065
  8. CODEINE PHOSPHATE [Suspect]
     Active Substance: CODEINE PHOSPHATE
     Indication: Product used for unknown indication
     Dosage: UNK
     Route: 065
  9. AMPICILLIN SODIUM [Suspect]
     Active Substance: AMPICILLIN SODIUM
     Indication: Product used for unknown indication
     Dosage: UNK
     Route: 065
  10. MINOXIDIL [Suspect]
     Active Substance: MINOXIDIL
     Indication: Product used for unknown indication
     Dosage: UNK
     Route: 065
  11. AZITHROMYCIN [Suspect]
     Active Substance: AZITHROMYCIN
     Indication: Product used for unknown indication
     Dosage: UNK
     Route: 065
  12. CIPROFLOXACIN HYDROCHLORIDE [Suspect]
     Active Substance: CIPROFLOXACIN HYDROCHLORIDE
     Indication: Product used for unknown indication
     Dosage: UNK
     Route: 065
  13. LEVOTHYROXINE SODIUM [Suspect]
     Active Substance: LEVOTHYROXINE SODIUM
     Indication: Product used for unknown indication
     Dosage: UNK
     Route: 065
  14. VALSARTAN [Suspect]
     Active Substance: VALSARTAN
     Indication: Hypertension
     Dosage: UNK
     Route: 065
     Dates: start: 20000120, end: 20000220
  15. VALSARTAN [Suspect]
     Active Substance: VALSARTAN
     Dosage: UNK
     Route: 065
     Dates: start: 20000220, end: 20000322
  16. VALSARTAN [Suspect]
     Active Substance: VALSARTAN
     Dosage: UNK
     Dates: start: 20000420, end: 20000520
  17. SULFAMETHOXAZOLE\TRIMETHOPRIM [Suspect]
     Active Substance: SULFAMETHOXAZOLE\TRIMETHOPRIM
     Indication: Hypertension
     Dosage: UNK
     Route: 065

REACTIONS (1)
  - Bladder transitional cell carcinoma [Recovered/Resolved]

NARRATIVE: CASE EVENT DATE: 20000320
